FAERS Safety Report 25925368 (Version 1)
Quarter: 2025Q4

REPORT INFORMATION
  Report Type: Report from Study
  Country: US (occurrence: US)
  Receive Date: 20251015
  Receipt Date: 20251015
  Transmission Date: 20260118
  Serious: No
  Sender: MALLINCKRODT
  Company Number: US-MALLINCKRODT-MNK202502544

PATIENT
  Sex: Male

DRUGS (5)
  1. CORTICOTROPIN [Suspect]
     Active Substance: CORTICOTROPIN
     Indication: Product used for unknown indication
     Dosage: UNKNOWN
  2. PREDNISONE [Concomitant]
     Active Substance: PREDNISONE
  3. PREDNISONE [Concomitant]
     Active Substance: PREDNISONE
  4. MYCOPHENOLIC ACID [Concomitant]
     Active Substance: MYCOPHENOLIC ACID
     Dosage: UNKNOWN
  5. MYCOPHENOLIC ACID [Concomitant]
     Active Substance: MYCOPHENOLIC ACID
     Dosage: UNKNOWN

REACTIONS (1)
  - Muscular weakness [Not Recovered/Not Resolved]
